FAERS Safety Report 6126225-5 (Version None)
Quarter: 2009Q1

REPORT INFORMATION
  Report Type: 
  Country: None (occurrence: None)
  Receive Date: 20090320
  Receipt Date: 20090318
  Transmission Date: 20090719
  Serious: Yes (Death)
  Sender: FDA-Public Use
  Company Number: HR-JNJFOC-20090305102

PATIENT
  Age: 44 Year
  Sex: Male

DRUGS (4)
  1. RISPOLEPT CONSTA [Suspect]
     Route: 065
  2. RISPOLEPT CONSTA [Suspect]
     Indication: ACUTE PSYCHOSIS
     Route: 065
  3. RISPOLEPT [Suspect]
     Indication: ACUTE PSYCHOSIS
     Route: 065
  4. NOZINAN [Suspect]
     Indication: DRUG USE FOR UNKNOWN INDICATION
     Dosage: DOSING 3X1/2
     Route: 065

REACTIONS (1)
  - COMPLETED SUICIDE [None]
